FAERS Safety Report 17458928 (Version 2)
Quarter: 2020Q1

REPORT INFORMATION
  Report Type: Report from Study
  Country: None (occurrence: BR)
  Receive Date: 20200225
  Receipt Date: 20200302
  Transmission Date: 20200409
  Serious: Yes (Death, Life-Threatening, Hospitalization)
  Sender: FDA-Public Use
  Company Number: BR-ABBVIE-18P-020-3128524-00

PATIENT
  Age: 19 Year
  Sex: Female
  Weight: 69.2 kg

DRUGS (10)
  1. CARBOPLATIN. [Concomitant]
     Active Substance: CARBOPLATIN
     Indication: LYMPHOMA
     Dosage: FREQUENCY PER PROTOCOL
     Route: 042
     Dates: start: 20181122, end: 20190111
  2. CYTARABINE. [Concomitant]
     Active Substance: CYTARABINE
     Indication: LYMPHOMA
     Route: 037
     Dates: start: 20181119, end: 20181119
  3. IBRUTINIB [Suspect]
     Active Substance: IBRUTINIB
     Indication: LYMPHOMA
     Route: 048
     Dates: start: 20181120, end: 20190113
  4. ETOPOSIDE. [Concomitant]
     Active Substance: ETOPOSIDE
     Indication: LYMPHOMA
     Dosage: FREQUENCY PER PROTOCOL
     Route: 042
     Dates: start: 20181122, end: 20190113
  5. RITUXIMAB. [Concomitant]
     Active Substance: RITUXIMAB
     Indication: LYMPHOMA
     Dosage: FREQUENCY PER PROTOCOL
     Route: 042
     Dates: start: 20181120, end: 20190109
  6. IFOSFAMIDE. [Concomitant]
     Active Substance: IFOSFAMIDE
     Indication: LYMPHOMA
     Route: 042
     Dates: start: 20181122, end: 20190111
  7. DEXAMETHASONE. [Concomitant]
     Active Substance: DEXAMETHASONE
     Indication: LYMPHOMA
     Route: 048
     Dates: start: 20181124, end: 20181124
  8. METHOTREXATE. [Concomitant]
     Active Substance: METHOTREXATE
     Indication: LYMPHOMA
     Route: 037
     Dates: start: 20181119, end: 20181119
  9. HYDROCORTISONE. [Concomitant]
     Active Substance: HYDROCORTISONE
     Indication: LYMPHOMA
     Route: 037
     Dates: start: 20181119, end: 20181119
  10. IBRUTINIB [Suspect]
     Active Substance: IBRUTINIB
     Route: 048

REACTIONS (12)
  - Sepsis [Recovered/Resolved]
  - Hepatic encephalopathy [Recovered/Resolved]
  - Hepatic failure [Recovered/Resolved]
  - Anaemia [Unknown]
  - Acute kidney injury [Recovered/Resolved]
  - Febrile neutropenia [Recovered/Resolved]
  - Multiple organ dysfunction syndrome [Fatal]
  - Thrombocytopenia [Unknown]
  - Renal failure [Unknown]
  - Septic shock [Unknown]
  - Pneumonia [Unknown]
  - Neutropenia [Unknown]

NARRATIVE: CASE EVENT DATE: 20181206
